FAERS Safety Report 25616738 (Version 3)
Quarter: 2025Q3

REPORT INFORMATION
  Report Type: Spontaneous
  Country: GB (occurrence: GB)
  Receive Date: 20250729
  Receipt Date: 20250818
  Transmission Date: 20251020
  Serious: Yes (Disabling)
  Sender: TEVA
  Company Number: GB-MHRA-TPP28327016C488620YC1753352151800

PATIENT
  Age: 68 Year
  Sex: Male
  Weight: 68 kg

DRUGS (4)
  1. DOXYCYCLINE [Suspect]
     Active Substance: DOXYCYCLINE
     Indication: Ill-defined disorder
     Route: 065
  2. SUMATRIPTAN [Concomitant]
     Active Substance: SUMATRIPTAN
     Indication: Ill-defined disorder
     Dates: start: 20240828
  3. AMOXICILLIN [Concomitant]
     Active Substance: AMOXICILLIN
     Indication: Ill-defined disorder
     Dates: start: 20250724
  4. LANSOPRAZOLE [Concomitant]
     Active Substance: LANSOPRAZOLE
     Indication: Ill-defined disorder
     Dosage: 30 MINUTES BEFORE FOOD
     Route: 065
     Dates: start: 20240514

REACTIONS (2)
  - Dizziness [Recovering/Resolving]
  - Vomiting [Recovered/Resolved]

NARRATIVE: CASE EVENT DATE: 20250724
